FAERS Safety Report 19116253 (Version 1)
Quarter: 2021Q2

REPORT INFORMATION
  Report Type: Spontaneous
  Country: US (occurrence: US)
  Receive Date: 20210409
  Receipt Date: 20210409
  Transmission Date: 20210717
  Serious: No
  Sender: FDA-Public Use
  Company Number: US-ASTELLAS-2021US006297

PATIENT
  Sex: Female

DRUGS (2)
  1. PROGRAF [Suspect]
     Active Substance: TACROLIMUS
     Indication: LIVER TRANSPLANT
     Dosage: UNK UNK, UNKNOWN FREQ.
     Route: 065
     Dates: end: 2009
  2. PROGRAF [Suspect]
     Active Substance: TACROLIMUS
     Indication: SURGERY
     Dosage: UNK UNK, UNKNOWN FREQ.
     Route: 065
     Dates: start: 201311

REACTIONS (2)
  - Renal disorder [Unknown]
  - Condition aggravated [Unknown]
